FAERS Safety Report 7139362-3 (Version None)
Quarter: 2010Q4

REPORT INFORMATION
  Report Type: 
  Country: None (occurrence: None)
  Receive Date: 20101206
  Receipt Date: 20101117
  Transmission Date: 20110411
  Serious: No
  Sender: FDA-Public Use
  Company Number: US-B.I. PHARMACEUTICALS,INC./RIDGEFIELD-2010-BP-12943BP

PATIENT
  Age: 69 Year
  Sex: Male

DRUGS (2)
  1. PRADAXA [Suspect]
     Indication: ATRIAL FIBRILLATION
     Dosage: 300 MG
     Route: 048
     Dates: start: 20101112
  2. LISINOPRIL [Concomitant]
     Indication: MITRAL VALVE PROLAPSE
     Dates: start: 20090101

REACTIONS (3)
  - DRY MOUTH [None]
  - NASAL CONGESTION [None]
  - NASAL DRYNESS [None]
